FAERS Safety Report 9098326 (Version 1)
Quarter: 2013Q1

REPORT INFORMATION
  Report Type: Spontaneous
  Country: FR (occurrence: FR)
  Receive Date: 20130213
  Receipt Date: 20130213
  Transmission Date: 20140127
  Serious: Yes (Hospitalization)
  Sender: FDA-Public Use
  Company Number: FR-ROCHE-1190395

PATIENT
  Age: 37 Year
  Sex: Male

DRUGS (11)
  1. ROFERON-A [Suspect]
     Indication: PRODUCT USED FOR UNKNOWN INDICATION
     Dosage: 3M THRICE WEEKLY
     Route: 058
     Dates: start: 20110127, end: 20111130
  2. CELESTENE [Suspect]
     Indication: PRODUCT USED FOR UNKNOWN INDICATION
     Dosage: 33 BOXES
     Route: 048
     Dates: start: 200802, end: 201102
  3. SOLUPRED (FRANCE) [Suspect]
     Indication: PRODUCT USED FOR UNKNOWN INDICATION
     Dosage: 4 BOXES
     Route: 048
     Dates: start: 200901, end: 201102
  4. TARGRETIN [Suspect]
     Indication: PRODUCT USED FOR UNKNOWN INDICATION
     Route: 065
     Dates: start: 20101020, end: 20111130
  5. DIPROLENE [Suspect]
     Indication: PRODUCT USED FOR UNKNOWN INDICATION
     Dosage: 74 TUBES
     Route: 061
     Dates: start: 201010, end: 201101
  6. BETNEVAL [Suspect]
     Indication: PRODUCT USED FOR UNKNOWN INDICATION
     Dosage: 22 TUBES
     Route: 061
     Dates: start: 200802, end: 201008
  7. DESONIDE [Suspect]
     Indication: PRODUCT USED FOR UNKNOWN INDICATION
     Dosage: 3 TUBES
     Route: 065
     Dates: start: 200802
  8. DIPROSONE [Suspect]
     Indication: PRODUCT USED FOR UNKNOWN INDICATION
     Dosage: 5 TUBES
     Route: 061
     Dates: start: 201009
  9. DESONIDE [Suspect]
     Indication: PRODUCT USED FOR UNKNOWN INDICATION
     Dosage: 4 TUBES
     Route: 061
     Dates: start: 201003, end: 201004
  10. BICNU [Concomitant]
     Route: 065
     Dates: start: 20101208
  11. SORIATANE [Concomitant]
     Route: 065
     Dates: start: 201201

REACTIONS (1)
  - Osteonecrosis [Not Recovered/Not Resolved]
